FAERS Safety Report 15388866 (Version 1)
Quarter: 2018Q3

REPORT INFORMATION
  Report Type: Spontaneous
  Country: CZ (occurrence: CZ)
  Receive Date: 20180916
  Receipt Date: 20180916
  Transmission Date: 20181010
  Serious: Yes (Hospitalization, Other)
  Sender: FDA-Public Use
  Company Number: CZ-BAXTER-2018BAX021123

PATIENT
  Age: 69 Year
  Sex: Male
  Weight: 83.83 kg

DRUGS (8)
  1. SURGICEL [Suspect]
     Active Substance: CELLULOSE, OXIDIZED
     Indication: TISSUE SEALING
     Route: 065
     Dates: start: 20180626
  2. ALGIFEN NEO [Concomitant]
     Indication: ANALGESIC THERAPY
     Dosage: ACCORDING TO NEED
     Route: 048
     Dates: start: 20180630
  3. FORTECORTIN [Concomitant]
     Active Substance: DEXAMETHASONE
     Indication: PROPHYLAXIS
     Dosage: TWICE A DAY (1?1?0)
     Route: 048
     Dates: start: 20180704
  4. DALACIN [Concomitant]
     Active Substance: CLINDAMYCIN
     Indication: INFECTION
     Dosage: 2 TABLETS OF 300 MG FOR EACH DOSE, THRICE A DAY (2?2?2).
     Route: 048
     Dates: start: 20180704
  5. FRAXIPARINE [Concomitant]
     Active Substance: NADROPARIN CALCIUM
     Indication: PROPHYLAXIS
     Dosage: ONCE IN THE EVENING (0?0?1)
     Route: 058
     Dates: start: 20180630
  6. TISSEEL [Suspect]
     Active Substance: FIBRINOGEN HUMAN\THROMBIN HUMAN
     Indication: TISSUE SEALING
     Dosage: FIBRIN SEALANT, APPLIED TO THE DURA MATER AT LEFT PARIETAL LOBE
     Route: 065
     Dates: start: 20180626, end: 20180626
  7. HELICID [Concomitant]
     Active Substance: OMEPRAZOLE
     Indication: PROPHYLAXIS
     Dosage: ONCE IN THE MORNING (1?0?0)
     Route: 048
     Dates: start: 20180704
  8. PARAMAX RAPID [Concomitant]
     Indication: ANALGESIC THERAPY
     Dosage: ACCORDING TO NEED
     Route: 048
     Dates: start: 20180626

REACTIONS (3)
  - Escherichia infection [Recovered/Resolved]
  - Application site infection [Recovered/Resolved]
  - Subdural empyema [Recovered/Resolved]

NARRATIVE: CASE EVENT DATE: 20180704
